FAERS Safety Report 23298138 (Version 3)
Quarter: 2024Q2

REPORT INFORMATION
  Report Type: Spontaneous
  Country: US (occurrence: US)
  Receive Date: 20231214
  Receipt Date: 20240502
  Transmission Date: 20240716
  Serious: Yes (Life-Threatening, Hospitalization, Other)
  Sender: FDA-Public Use
  Company Number: US-PFIZER INC-PV202300198881

PATIENT
  Age: 49 Year
  Sex: Female

DRUGS (3)
  1. PROPOFOL [Suspect]
     Active Substance: PROPOFOL
     Indication: Sedation
     Dosage: 40 MCG/KG/MIN, INFUSIONS
  2. PROPOFOL [Suspect]
     Active Substance: PROPOFOL
     Dosage: 70 MCG/KG/MIN, INFUSIONS
  3. FENTANYL [Concomitant]
     Active Substance: FENTANYL\FENTANYL CITRATE
     Indication: Sedation
     Dosage: INFUSIONS

REACTIONS (1)
  - Propofol infusion syndrome [Recovering/Resolving]
